FAERS Safety Report 5024465-X (Version None)
Quarter: 2006Q2

REPORT INFORMATION
  Report Type: 
  Country: None (occurrence: None)
  Receive Date: 20060613
  Receipt Date: 20060301
  Transmission Date: 20061013
  Serious: Yes (Other)
  Sender: FDA-Public Use
  Company Number: PHEH2006US02883

PATIENT
  Age: 60 Year
  Sex: Female

DRUGS (5)
  1. LAMISIL [Suspect]
     Indication: NAIL TINEA
     Dosage: 250 MG, QD
     Route: 048
     Dates: start: 20050101, end: 20050101
  2. NARDIL [Concomitant]
  3. PREMARIN [Concomitant]
  4. FOSAMAX [Concomitant]
  5. LEVOXYL [Concomitant]

REACTIONS (7)
  - DERMATITIS BULLOUS [None]
  - ECZEMA [None]
  - EXOSTOSIS [None]
  - PAIN IN EXTREMITY [None]
  - SHOULDER PAIN [None]
  - SKIN DISCOLOURATION [None]
  - SKIN EXFOLIATION [None]
